FAERS Safety Report 12117481 (Version 1)
Quarter: 2016Q1

REPORT INFORMATION
  Report Type: Spontaneous
  Country: SE (occurrence: SE)
  Receive Date: 20160225
  Receipt Date: 20160225
  Transmission Date: 20160526
  Serious: Yes (Death)
  Sender: FDA-Public Use
  Company Number: SE-ROCHE-1716460

PATIENT
  Age: 29 Year
  Sex: Female

DRUGS (1)
  1. MABTHERA [Suspect]
     Active Substance: RITUXIMAB
     Indication: SYSTEMIC LUPUS ERYTHEMATOSUS
     Route: 065
     Dates: start: 20140123, end: 20140527

REACTIONS (1)
  - Tick-borne viral encephalitis [Fatal]

NARRATIVE: CASE EVENT DATE: 20150523
